FAERS Safety Report 6169442-0 (Version None)
Quarter: 2009Q2

REPORT INFORMATION
  Report Type: 
  Country: None (occurrence: None)
  Receive Date: 20090428
  Receipt Date: 20090420
  Transmission Date: 20091009
  Serious: Yes (Hospitalization, Other)
  Sender: FDA-Public Use
  Company Number: PHEH2007US14407

PATIENT
  Sex: Female

DRUGS (1)
  1. AREDIA [Suspect]

REACTIONS (10)
  - ANAPHYLACTIC REACTION [None]
  - ANHEDONIA [None]
  - ANXIETY [None]
  - CHOLECYSTECTOMY [None]
  - ENDODONTIC PROCEDURE [None]
  - INJURY [None]
  - OSTEONECROSIS [None]
  - PAIN [None]
  - SEPSIS [None]
  - TOOTH EXTRACTION [None]
